FAERS Safety Report 21315941 (Version 1)
Quarter: 2022Q3

REPORT INFORMATION
  Report Type: Spontaneous
  Country: US (occurrence: US)
  Receive Date: 20220910
  Receipt Date: 20220910
  Transmission Date: 20221027
  Serious: No
  Sender: FDA-Public Use
  Company Number: US-drreddys-SPO/USA/22/0154097

PATIENT
  Age: 34 Year
  Sex: Female

DRUGS (2)
  1. ACCUTANE [Suspect]
     Active Substance: ISOTRETINOIN
     Indication: Product used for unknown indication
     Dosage: RMA ISSUE DATE: 24 AUGUST 2022 03:02:40 PM, 22 JULY 2022 09:24:32 AM, 23 JUNE 2022 09:31:01 AM
     Dates: start: 20220211
  2. ZENATANE [Suspect]
     Active Substance: ISOTRETINOIN
     Indication: Product used for unknown indication
     Dosage: RMA ISSUE DATE: 20 MAY 2022 02:15:04 PM, 13 APRIL 2022 09:45:23 AM

REACTIONS (1)
  - Hepatic steatosis [Unknown]
